FAERS Safety Report 20124865 (Version 1)
Quarter: 2021Q4

REPORT INFORMATION
  Report Type: Spontaneous
  Country: CA (occurrence: CA)
  Receive Date: 20211129
  Receipt Date: 20211129
  Transmission Date: 20220303
  Serious: Yes (Life-Threatening, Hospitalization, Disabling, Other)
  Sender: FDA-Public Use
  Company Number: CA-009507513-2111CAN007871

PATIENT
  Age: 81 Year
  Sex: Female

DRUGS (7)
  1. KEYTRUDA [Suspect]
     Active Substance: PEMBROLIZUMAB
     Indication: Malignant melanoma
     Route: 042
  2. AMLODIPINE [Concomitant]
     Active Substance: AMLODIPINE BESYLATE
  3. ASPIRIN [Concomitant]
     Active Substance: ASPIRIN
  4. CLOBETASOL PROPIONATE [Concomitant]
     Active Substance: CLOBETASOL PROPIONATE
  5. CRESTOR [Concomitant]
     Active Substance: ROSUVASTATIN CALCIUM
  6. HYDROCHLOROTHIAZIDE\QUINAPRIL HYDROCHLORIDE [Concomitant]
     Active Substance: HYDROCHLOROTHIAZIDE\QUINAPRIL HYDROCHLORIDE
  7. VAGIFEM [Concomitant]
     Active Substance: ESTRADIOL

REACTIONS (15)
  - Asthenia [Unknown]
  - Cough [Unknown]
  - Diarrhoea [Unknown]
  - Diplopia [Unknown]
  - Dysstasia [Unknown]
  - Eyelid ptosis [Unknown]
  - Hypopnoea [Unknown]
  - Hypothyroidism [Unknown]
  - Musculoskeletal discomfort [Unknown]
  - Myalgia [Unknown]
  - Myasthenia gravis [Unknown]
  - Myocarditis [Unknown]
  - Myositis [Unknown]
  - Sensory loss [Unknown]
  - Slow speech [Unknown]
